FAERS Safety Report 5867937-8 (Version None)
Quarter: 2008Q3

REPORT INFORMATION
  Report Type: 
  Country: None (occurrence: None)
  Receive Date: 20080902
  Receipt Date: 20080828
  Transmission Date: 20090109
  Serious: Yes (Other)
  Sender: FDA-Public Use
  Company Number: GB-BOEHRINGER INGELHEIM GMBH, GERMANY-2008-UK-01499UK

PATIENT
  Age: 86 Year
  Sex: Male

DRUGS (3)
  1. PERSANTIN (00015/0052R) [Suspect]
     Indication: CEREBROVASCULAR ACCIDENT
     Dosage: 200 MG TWICE DAILY
     Dates: start: 20080826
  2. ASPIRIN [Concomitant]
  3. RIFAMPIN [Concomitant]

REACTIONS (1)
  - APHASIA [None]
